FAERS Safety Report 9100073 (Version 2)
Quarter: 2013Q1

REPORT INFORMATION
  Report Type: Spontaneous
  Country: JP (occurrence: JP)
  Receive Date: 20130215
  Receipt Date: 20130226
  Transmission Date: 20140127
  Serious: Yes (Death, Hospitalization, Other)
  Sender: FDA-Public Use
  Company Number: JP-AMGEN-JPNSP2013001242

PATIENT
  Age: 59 Year
  Sex: Male
  Weight: 56 kg

DRUGS (9)
  1. AMG 761 [Suspect]
     Indication: ADULT T-CELL LYMPHOMA/LEUKAEMIA
     Dosage: 1 MG/KG, QWK
     Route: 041
     Dates: start: 20120608, end: 20120726
  2. GRAN [Concomitant]
     Dosage: UNK
  3. DIPHENHYDRAMINE [Concomitant]
     Dosage: UNK
     Dates: start: 20120608, end: 20120629
  4. ACETAMINOPHEN [Concomitant]
     Dosage: UNK
     Dates: start: 20120608, end: 20120629
  5. SOLU-CORTEF [Concomitant]
     Dosage: UNK
     Dates: start: 20120608, end: 20120726
  6. ITRIZOLE [Concomitant]
     Dosage: UNK
     Dates: start: 20120426
  7. BAKTAR [Concomitant]
     Dosage: UNK
     Route: 048
     Dates: start: 20120426
  8. ZOVIRAX [Concomitant]
     Dosage: UNK
     Route: 048
     Dates: start: 20120426
  9. FINIBAX [Concomitant]
     Dosage: UNK

REACTIONS (3)
  - Disease progression [Fatal]
  - Infection [Not Recovered/Not Resolved]
  - Infusion related reaction [Recovered/Resolved]
